FAERS Safety Report 7374784-7 (Version None)
Quarter: 2011Q1

REPORT INFORMATION
  Report Type: 
  Country: None (occurrence: None)
  Receive Date: 20110325
  Receipt Date: 20101209
  Transmission Date: 20110831
  Serious: No
  Sender: FDA-Public Use
  Company Number: US-MYLANLABS-2010S1020581

PATIENT
  Age: 58 Year
  Sex: Male

DRUGS (7)
  1. FENTANYL-100 [Suspect]
     Indication: BACK PAIN
     Dosage: CHANGED Q72H
     Route: 062
     Dates: start: 20101103
  2. FENTANYL-100 [Suspect]
     Dosage: CHANGED Q72H
     Route: 062
     Dates: start: 20101103
  3. SOMA [Concomitant]
  4. XANAX [Concomitant]
  5. TOPROL-XL [Concomitant]
  6. VALIUM [Concomitant]
  7. OXYCODONE [Concomitant]
     Indication: BREAKTHROUGH PAIN

REACTIONS (8)
  - TREMOR [None]
  - DRUG WITHDRAWAL SYNDROME [None]
  - LOSS OF CONSCIOUSNESS [None]
  - ANXIETY [None]
  - NIGHTMARE [None]
  - DEPRESSED MOOD [None]
  - HYPERHIDROSIS [None]
  - CRYING [None]
